FAERS Safety Report 5273854-7 (Version None)
Quarter: 2007Q1

REPORT INFORMATION
  Report Type: 
  Country: None (occurrence: None)
  Receive Date: 20070323
  Receipt Date: 20070315
  Transmission Date: 20070707
  Serious: Yes (Other)
  Sender: FDA-Public Use
  Company Number: TW-ROCHE-484445

PATIENT
  Age: 40 Year
  Sex: Female

DRUGS (2)
  1. PEGASYS [Suspect]
     Route: 058
     Dates: start: 20060529, end: 20070210
  2. SILYMARIN [Concomitant]
     Indication: HEPATITIS B
     Route: 048
     Dates: start: 20050706

REACTIONS (2)
  - EPISTAXIS [None]
  - MOUTH HAEMORRHAGE [None]
